FAERS Safety Report 18880253 (Version 2)
Quarter: 2021Q1

REPORT INFORMATION
  Report Type: Spontaneous
  Country: US (occurrence: US)
  Receive Date: 20210211
  Receipt Date: 20210226
  Transmission Date: 20210420
  Serious: No
  Sender: FDA-Public Use
  Company Number: US-TAKEDA-2021TUS007785

PATIENT
  Sex: Female
  Weight: 68 kg

DRUGS (15)
  1. AMLODIPINE [Concomitant]
     Active Substance: AMLODIPINE BESYLATE
  2. ZINC + VITAMIN C [Concomitant]
     Active Substance: ASCORBIC ACID\ZINC
  3. DIPHENHYDRAMINE. [Concomitant]
     Active Substance: DIPHENHYDRAMINE
  4. CUVITRU [Suspect]
     Active Substance: HUMAN IMMUNOGLOBULIN G
     Indication: IMMUNODEFICIENCY COMMON VARIABLE
     Dosage: 14 MILLIGRAM, 1/WEEK
     Route: 058
     Dates: start: 20210119
  5. LOSARTAN. [Concomitant]
     Active Substance: LOSARTAN
  6. VITAMINS NOS [Concomitant]
     Active Substance: VITAMINS
  7. AZITHROMYCIN ANHYDROUS. [Concomitant]
     Active Substance: AZITHROMYCIN ANHYDROUS
  8. LEVOTHYROXINE. [Concomitant]
     Active Substance: LEVOTHYROXINE
  9. LEXAPRO [Concomitant]
     Active Substance: ESCITALOPRAM OXALATE
  10. OMEPRAZOLE. [Concomitant]
     Active Substance: OMEPRAZOLE
  11. EPINEPHRINE. [Concomitant]
     Active Substance: EPINEPHRINE
  12. MULTIVITAMINS [VITAMINS NOS] [Concomitant]
     Active Substance: VITAMINS
  13. ACETAMINOPHEN. [Concomitant]
     Active Substance: ACETAMINOPHEN
  14. XANAX [Concomitant]
     Active Substance: ALPRAZOLAM
  15. BOTOX [Concomitant]
     Active Substance: ONABOTULINUMTOXINA

REACTIONS (3)
  - Dizziness [Unknown]
  - Nausea [Unknown]
  - Sinusitis [Unknown]
